FAERS Safety Report 6582309-9 (Version None)
Quarter: 2010Q1

REPORT INFORMATION
  Report Type: 
  Country: None (occurrence: None)
  Receive Date: 20100212
  Receipt Date: 20100212
  Transmission Date: 20100710
  Serious: Yes (Hospitalization)
  Sender: FDA-Public Use
  Company Number: None

PATIENT
  Age: 53 Year
  Sex: Male
  Weight: 98.4 kg

DRUGS (1)
  1. PREDNISONE [Suspect]
     Indication: GOUT
     Dates: start: 20091021, end: 20091102

REACTIONS (3)
  - AGGRESSION [None]
  - AGITATION [None]
  - PSYCHOTIC DISORDER [None]
